FAERS Safety Report 9476170 (Version 1)
Quarter: 2013Q3

REPORT INFORMATION
  Report Type: Spontaneous
  Country: US (occurrence: None)
  Receive Date: 20130823
  Receipt Date: 20130823
  Transmission Date: 20140515
  Serious: Yes (Hospitalization)
  Sender: FDA-Public Use
  Company Number: None

PATIENT
  Age: 10 Year
  Sex: Female
  Weight: 28 kg

DRUGS (2)
  1. DEPAKENE [Suspect]
     Indication: EPILEPSY
     Dosage: GASTROSTOMY TUBE
     Dates: start: 201204, end: 201206
  2. DEPAKENE [Suspect]
     Dosage: GASTROSTOMY TUBE
     Dates: start: 201204, end: 201206

REACTIONS (2)
  - Convulsion [None]
  - Product substitution issue [None]
